FAERS Safety Report 5849669-5 (Version None)
Quarter: 2008Q3

REPORT INFORMATION
  Report Type: 
  Country: None (occurrence: None)
  Receive Date: 20080815
  Receipt Date: 20080730
  Transmission Date: 20090109
  Serious: Yes (Other)
  Sender: FDA-Public Use
  Company Number: 08-000979

PATIENT
  Age: 75 Year
  Sex: Male

DRUGS (4)
  1. TACLONEX          (CALCIPOTRIENE 0.005%, BETAMETHASONE DIPIONATE 0.064 [Suspect]
     Indication: PSORIASIS
     Dosage: 0.005/0.64% TOPICAL
     Route: 061
     Dates: start: 20070830
  2. PAROXETINE HCL [Concomitant]
  3. SERC    /00034201/ (THIORIDAZINE) [Concomitant]
  4. TANAKAN   /01003103/ (GINKGO BILOBA EXTRACT) [Concomitant]

REACTIONS (1)
  - ERYTHRODERMIC PSORIASIS [None]
